FAERS Safety Report 19925150 (Version 1)
Quarter: 2021Q4

REPORT INFORMATION
  Report Type: Spontaneous
  Country: US (occurrence: US)
  Receive Date: 20211006
  Receipt Date: 20211006
  Transmission Date: 20220303
  Serious: Yes (Other)
  Sender: FDA-Public Use
  Company Number: US-NOVARTISPH-NVSC2021US227387

PATIENT
  Age: 56 Year
  Sex: Female

DRUGS (2)
  1. RANITIDINE [Suspect]
     Active Substance: RANITIDINE
     Indication: Rubber sensitivity
     Dosage: 150 MG, QD
     Route: 065
     Dates: start: 201306, end: 201407
  2. RANITIDINE [Suspect]
     Active Substance: RANITIDINE
     Indication: Rubber sensitivity
     Dosage: 150 MG, QD
     Route: 065
     Dates: start: 201306, end: 201407

REACTIONS (2)
  - Invasive lobular breast carcinoma [Unknown]
  - Product use in unapproved indication [Unknown]

NARRATIVE: CASE EVENT DATE: 20171001
